FAERS Safety Report 8199141-5 (Version None)
Quarter: 2012Q1

REPORT INFORMATION
  Report Type: 
  Country: None (occurrence: None)
  Receive Date: 20120309
  Receipt Date: 20120229
  Transmission Date: 20120608
  Serious: Yes (Hospitalization)
  Sender: FDA-Public Use
  Company Number: US-ABBOTT-12P-163-0910311-00

PATIENT
  Sex: Female

DRUGS (1)
  1. HUMIRA [Suspect]
     Indication: SPONDYLOARTHROPATHY
     Route: 058
     Dates: start: 20120101, end: 20120228

REACTIONS (5)
  - RESPIRATORY TRACT IRRITATION [None]
  - HYPERSENSITIVITY [None]
  - COUGH [None]
  - OFF LABEL USE [None]
  - SPONDYLOARTHROPATHY [None]
